FAERS Safety Report 20984277 (Version 1)
Quarter: 2022Q2

REPORT INFORMATION
  Report Type: Spontaneous
  Country: US (occurrence: None)
  Receive Date: 20220621
  Receipt Date: 20220621
  Transmission Date: 20220720
  Serious: Yes (Other)
  Sender: FDA-Public Use
  Company Number: US-ROCHE-2870110

PATIENT
  Age: 54 Year
  Sex: Female

DRUGS (1)
  1. TECENTRIQ [Suspect]
     Active Substance: ATEZOLIZUMAB
     Indication: Squamous cell carcinoma of lung
     Route: 042

REACTIONS (5)
  - Drug reaction with eosinophilia and systemic symptoms [Unknown]
  - Arthralgia [Unknown]
  - Muscular weakness [Unknown]
  - Fatigue [Unknown]
  - Eosinophilia [Unknown]

NARRATIVE: CASE EVENT DATE: 20201001
